FAERS Safety Report 19452191 (Version 1)
Quarter: 2021Q2

REPORT INFORMATION
  Report Type: Other
  Country: US (occurrence: US)
  Receive Date: 20210623
  Receipt Date: 20210623
  Transmission Date: 20210717
  Serious: Yes (Other)
  Sender: FDA-Public Use
  Company Number: US-ROCHE-2851913

PATIENT
  Sex: Female

DRUGS (29)
  1. XOLAIR [Suspect]
     Active Substance: OMALIZUMAB
  2. ASPIRIN. [Concomitant]
     Active Substance: ASPIRIN
     Route: 048
  3. VITAMIN B12 [Concomitant]
     Active Substance: CYANOCOBALAMIN
     Dosage: INJECT 1000 MCG INTO THE MUSCLE EVERY 30 DAYS
  4. CYMBALTA [Concomitant]
     Active Substance: DULOXETINE HYDROCHLORIDE
     Route: 048
  5. MOTRIN [Concomitant]
     Active Substance: IBUPROFEN
  6. XOLAIR [Suspect]
     Active Substance: OMALIZUMAB
     Indication: ASTHMA
     Route: 058
  7. XOLAIR [Suspect]
     Active Substance: OMALIZUMAB
  8. EPIPEN [Concomitant]
     Active Substance: EPINEPHRINE
  9. NEURONTIN [Concomitant]
     Active Substance: GABAPENTIN
     Route: 048
  10. SINGULAIR [Concomitant]
     Active Substance: MONTELUKAST SODIUM
  11. ELAVIL [AMITRIPTYLINE] [Concomitant]
     Dosage: TAKE ONE TABLET BY MOUTH NIGHTLY
     Route: 048
  12. NEURONTIN [Concomitant]
     Active Substance: GABAPENTIN
     Dosage: TAKE 1 CAPSULE THREE TIMES A DAY
     Route: 048
  13. ATARAX [Concomitant]
     Active Substance: HYDROXYZINE HYDROCHLORIDE
  14. TRULANCE [Concomitant]
     Active Substance: PLECANATIDE
     Dosage: TAKE 3 MG BY MOUTH ONE TIME A DAY
     Route: 048
  15. LYRICA [Concomitant]
     Active Substance: PREGABALIN
     Route: 048
  16. XOLAIR [Suspect]
     Active Substance: OMALIZUMAB
  17. LINZESS [Concomitant]
     Active Substance: LINACLOTIDE
     Dosage: TAKE 72 MCG ONE TIME A DAY
     Route: 048
  18. VOLTAREN [Concomitant]
     Active Substance: DICLOFENAC SODIUM
     Route: 061
  19. XOLAIR [Suspect]
     Active Substance: OMALIZUMAB
  20. DEXILANT [Concomitant]
     Active Substance: DEXLANSOPRAZOLE
     Dosage: TAKE 60 MG BY MOUTH ONE TIME A DAY
     Route: 048
  21. MINOCIN [Concomitant]
     Active Substance: MINOCYCLINE HYDROCHLORIDE
  22. CARAFATE [Concomitant]
     Active Substance: SUCRALFATE
     Route: 048
  23. LIORESAL [Concomitant]
     Active Substance: BACLOFEN
     Dosage: TAKE ONE TABLET BY MOUTH THREE TIMES A DAY
     Route: 048
  24. AMITIZA [Concomitant]
     Active Substance: LUBIPROSTONE
     Dosage: TAKE 24 MCG BY MOUTH 2 TIMES A DAY WITH MEALS
     Route: 048
  25. METROGEL [Concomitant]
     Active Substance: METRONIDAZOLE
     Route: 061
  26. XOLAIR [Suspect]
     Active Substance: OMALIZUMAB
     Indication: IDIOPATHIC URTICARIA
  27. TYLENOL [Concomitant]
     Active Substance: ACETAMINOPHEN
     Dosage: TAKE 1 TABLET BY MOUTH TWICE A DAY
     Route: 048
  28. PEPCID [Concomitant]
     Active Substance: FAMOTIDINE
     Dosage: TAKE ONE TABLET 2 TIMES A DAY FOR 5 DAYS
     Route: 048
  29. LORTAB [Concomitant]
     Active Substance: ACETAMINOPHEN\HYDROCODONE BITARTRATE
     Indication: PAIN
     Dosage: TAKE 1 TABLET AS NEEDED
     Route: 048

REACTIONS (1)
  - Anaphylactic reaction [Unknown]
